FAERS Safety Report 8184425-7 (Version None)
Quarter: 2012Q1

REPORT INFORMATION
  Report Type: 
  Country: None (occurrence: None)
  Receive Date: 20120305
  Receipt Date: 20120223
  Transmission Date: 20120608
  Serious: Yes (Hospitalization, Other)
  Sender: FDA-Public Use
  Company Number: FR-JNJFOC-20120212954

PATIENT
  Sex: Female

DRUGS (6)
  1. DEPAKENE [Suspect]
     Route: 048
     Dates: start: 20120113
  2. HALDOL [Suspect]
     Indication: PSYCHOTIC DISORDER
     Route: 048
     Dates: start: 20111102, end: 20111201
  3. DEPAKENE [Suspect]
     Route: 048
     Dates: start: 20120109
  4. DEPAKENE [Suspect]
     Indication: EPILEPSY
     Route: 048
     Dates: start: 20120102
  5. TRILEPTAL [Suspect]
     Indication: EPILEPSY
     Route: 048
     Dates: start: 20111102, end: 20120109
  6. SEROQUEL [Suspect]
     Indication: PSYCHOTIC DISORDER
     Route: 048
     Dates: start: 20111227

REACTIONS (4)
  - LEUKOPENIA [None]
  - NEUTROPENIA [None]
  - DELIRIUM [None]
  - DISSOCIATIVE DISORDER [None]
